FAERS Safety Report 5094509-8 (Version None)
Quarter: 2006Q3

REPORT INFORMATION
  Report Type: 
  Country: None (occurrence: None)
  Receive Date: 20060731
  Receipt Date: 20060420
  Transmission Date: 20061208
  Serious: No
  Sender: FDA-Public Use
  Company Number: 2006PV012565

PATIENT
  Age: 53 Year
  Sex: Female
  Weight: 90.7194 kg

DRUGS (4)
  1. BYETTA [Suspect]
     Indication: DIABETES MELLITUS NON-INSULIN-DEPENDENT
     Dosage: 5 MCG;BID;SC
     Route: 058
     Dates: start: 20050601
  2. METFORMIN HCL [Concomitant]
  3. LANTUS [Concomitant]
  4. NOVOLOG [Concomitant]

REACTIONS (3)
  - BLOOD GLUCOSE DECREASED [None]
  - BLOOD GLUCOSE INCREASED [None]
  - VISUAL DISTURBANCE [None]
